FAERS Safety Report 9410529 (Version 4)
Quarter: 2014Q2

REPORT INFORMATION
  Report Type: Spontaneous
  Country: ES (occurrence: ES)
  Receive Date: 20130719
  Receipt Date: 20140411
  Transmission Date: 20141212
  Serious: Yes (Life-Threatening, Hospitalization, Other)
  Sender: FDA-Public Use
  Company Number: ES-PFIZER INC-2013208430

PATIENT
  Age: 66 Year
  Sex: Female

DRUGS (2)
  1. ZARATOR [Suspect]
     Indication: HYPERCHOLESTEROLAEMIA
     Dosage: 10 MG, 1X/DAY
     Route: 048
     Dates: start: 201101, end: 201305
  2. DIANBEN [Concomitant]
     Dosage: 850 MG, 3X/DAY

REACTIONS (12)
  - Immune-mediated necrotising myopathy [Recovered/Resolved with Sequelae]
  - Diverticulitis [Not Recovered/Not Resolved]
  - Escherichia infection [Unknown]
  - Helicobacter infection [Recovered/Resolved]
  - Thrombosis [Not Recovered/Not Resolved]
  - Blood glucose increased [Unknown]
  - Decubitus ulcer [Unknown]
  - Weight decreased [Unknown]
  - Tremor [Unknown]
  - Hyperhidrosis [Unknown]
  - Pyrexia [Unknown]
  - Nasopharyngitis [Unknown]
